FAERS Safety Report 15386501 (Version 2)
Quarter: 2018Q3

REPORT INFORMATION
  Report Type: Report from Study
  Country: US (occurrence: US)
  Receive Date: 20180914
  Receipt Date: 20180919
  Transmission Date: 20181010
  Serious: Yes (Death, Other)
  Sender: FDA-Public Use
  Company Number: AU-SAKK-2018SA251690AA

PATIENT
  Age: 53 Year
  Sex: Male

DRUGS (2)
  1. CISPLATIN. [Suspect]
     Active Substance: CISPLATIN
     Indication: SQUAMOUS CELL CARCINOMA OF HEAD AND NECK
     Dosage: 25 MG/M2, QW
  2. DOCETAXEL. [Suspect]
     Active Substance: DOCETAXEL
     Dosage: 35 MG/M2, QW

REACTIONS (2)
  - Disease progression [Fatal]
  - Squamous cell carcinoma of head and neck [Fatal]
